FAERS Safety Report 23483633 (Version 6)
Quarter: 2025Q4

REPORT INFORMATION
  Report Type: Spontaneous
  Country: US (occurrence: US)
  Receive Date: 20240205
  Receipt Date: 20251030
  Transmission Date: 20260118
  Serious: No
  Sender: PFIZER
  Company Number: US-PFIZER INC-202400029929

PATIENT
  Age: 86 Year
  Sex: Male
  Weight: 72.562 kg

DRUGS (2)
  1. VYNDAMAX [Suspect]
     Active Substance: TAFAMIDIS
     Indication: Cardiac failure
     Dosage: 61 MG, 1X/DAY
     Route: 048
     Dates: start: 2018
  2. VYNDAMAX [Suspect]
     Active Substance: TAFAMIDIS
     Indication: Amyloidosis

REACTIONS (1)
  - Swelling [Unknown]
